FAERS Safety Report 8421254-0 (Version None)
Quarter: 2012Q2

REPORT INFORMATION
  Report Type: 
  Country: None (occurrence: None)
  Receive Date: 20120604
  Receipt Date: 20120604
  Transmission Date: 20120825
  Serious: Yes (Other)
  Sender: FDA-Public Use
  Company Number: None

PATIENT
  Sex: Male

DRUGS (1)
  1. AVONEX [Suspect]
     Indication: MULTIPLE SCLEROSIS
     Dosage: INJECTABLE WEEKLY INTRAMUSCULAR 030
     Route: 030
     Dates: start: 20120531

REACTIONS (3)
  - BODY TEMPERATURE INCREASED [None]
  - FLUSHING [None]
  - HEADACHE [None]
